FAERS Safety Report 5089123-4 (Version None)
Quarter: 2006Q3

REPORT INFORMATION
  Report Type: 
  Country: None (occurrence: None)
  Receive Date: 20060822
  Receipt Date: 20060731
  Transmission Date: 20061208
  Serious: Yes (Disabling)
  Sender: FDA-Public Use
  Company Number: JP200608000005

PATIENT
  Age: 58 Year
  Sex: Female

DRUGS (17)
  1. OLANZAPINE [Suspect]
     Indication: SCHIZOPHRENIA, PARANOID TYPE
     Dosage: SEE IMAGE, ORAL
     Route: 048
     Dates: start: 20060517, end: 20060531
  2. OLANZAPINE [Suspect]
     Indication: SCHIZOPHRENIA, PARANOID TYPE
     Dosage: SEE IMAGE, ORAL
     Route: 048
     Dates: start: 20060601, end: 20060621
  3. OLANZAPINE [Suspect]
     Indication: SCHIZOPHRENIA, PARANOID TYPE
     Dosage: SEE IMAGE, ORAL
     Route: 048
     Dates: start: 20060622
  4. RISPERDAL [Concomitant]
  5. CHLORPROMAZINE HCL [Concomitant]
  6. TEGRETOL [Concomitant]
  7. VEGETAMIN A (CHLORPROMAZINE HYDROCHLORIDE, PHENOBARBITAL, PROMETHAZINE [Concomitant]
  8. NITRAZEPAM [Concomitant]
  9. ARTANE [Concomitant]
  10. DEXCHLORPHENIRAMINE MALEATE [Concomitant]
  11. METHYCOBAL (MECOBALAMIN) [Concomitant]
  12. VITAMEDIN CAPSULE (BENFOTIAMINE, CYANOCOBALAMIN, PYRIDOXINE HYDROCHLOR [Concomitant]
  13. PURSENNID (SENNOSIDE A+B, SENNOSIDE A+B CALCIUM) TABLET [Concomitant]
  14. LAXOBERON (SODIUM PICOSULFATE) TABLET [Concomitant]
  15. AM (ALUMINIUM HYDROXIDE GEL, DRIED, A [Concomitant]
  16. CINAL (ASCORBIC ACID, CALCIUM PANTOTHENATE) TABLET [Concomitant]
  17. TETUCUR (FERROPOLIMALER) TABLET [Concomitant]

REACTIONS (2)
  - CONDITION AGGRAVATED [None]
  - POLYDIPSIA [None]
